FAERS Safety Report 20845590 (Version 1)
Quarter: 2022Q2

REPORT INFORMATION
  Report Type: Spontaneous
  Country: US (occurrence: US)
  Receive Date: 20220518
  Receipt Date: 20220518
  Transmission Date: 20220720
  Serious: No
  Sender: FDA-Public Use
  Company Number: US-PFIZER INC-202200592180

PATIENT
  Sex: Male

DRUGS (1)
  1. LIOTHYRONINE SODIUM [Suspect]
     Active Substance: LIOTHYRONINE SODIUM
     Dosage: 5 UG

REACTIONS (3)
  - Insomnia [Unknown]
  - Hot flush [Unknown]
  - Hyperhidrosis [Unknown]
